FAERS Safety Report 19399535 (Version 1)
Quarter: 2021Q2

REPORT INFORMATION
  Report Type: Spontaneous
  Country: IT (occurrence: IT)
  Receive Date: 20210610
  Receipt Date: 20210610
  Transmission Date: 20210717
  Serious: Yes (Hospitalization)
  Sender: FDA-Public Use
  Company Number: IT-MYLANLABS-2021M1033714

PATIENT
  Age: 4 Year
  Sex: Female

DRUGS (1)
  1. FENTANYL. [Suspect]
     Active Substance: FENTANYL
     Indication: WOUND COMPLICATION
     Dosage: FENTANYL TRANSDERMAL THERAPEUTIC PATCH CONTAINING FENTANYL 50 MICROG/H
     Route: 062

REACTIONS (5)
  - Accidental overdose [Recovered/Resolved]
  - Incorrect product formulation administered [Recovered/Resolved]
  - Vomiting [Recovered/Resolved]
  - Nausea [Recovered/Resolved]
  - Miosis [Recovered/Resolved]
